FAERS Safety Report 22648475 (Version 2)
Quarter: 2024Q2

REPORT INFORMATION
  Report Type: Report from Study
  Country: CA (occurrence: CA)
  Receive Date: 20230628
  Receipt Date: 20240401
  Transmission Date: 20240715
  Serious: Yes (Disabling, Other)
  Sender: FDA-Public Use
  Company Number: CA-TAKEDA-2019TUS069764

PATIENT
  Age: 56 Year
  Sex: Female

DRUGS (9)
  1. VEDOLIZUMAB [Suspect]
     Active Substance: VEDOLIZUMAB
     Indication: Crohn^s disease
     Dosage: 300 MILLIGRAM
     Route: 042
     Dates: start: 20190508
  2. VEDOLIZUMAB [Suspect]
     Active Substance: VEDOLIZUMAB
     Dosage: 300 MILLIGRAM
     Route: 042
  3. VEDOLIZUMAB [Suspect]
     Active Substance: VEDOLIZUMAB
     Dosage: 300 MILLIGRAM
     Route: 042
  4. VEDOLIZUMAB [Suspect]
     Active Substance: VEDOLIZUMAB
     Dosage: 300 MILLIGRAM
     Route: 042
  5. VEDOLIZUMAB [Suspect]
     Active Substance: VEDOLIZUMAB
     Dosage: 300 MILLIGRAM
     Route: 042
  6. VEDOLIZUMAB [Suspect]
     Active Substance: VEDOLIZUMAB
     Dosage: 300 MILLIGRAM
     Route: 042
  7. AMLODIPINE [Concomitant]
     Active Substance: AMLODIPINE BESYLATE
     Indication: Hypertension
     Dosage: UNK
  8. HYDROCHLOROTHIAZIDE [Concomitant]
     Active Substance: HYDROCHLOROTHIAZIDE
     Indication: Hypertension
     Dosage: UNK
  9. AZATHIOPRINE [Concomitant]
     Active Substance: AZATHIOPRINE
     Dosage: 150 MILLIGRAM
     Route: 048

REACTIONS (5)
  - Clavicle fracture [Recovering/Resolving]
  - Shoulder fracture [Recovering/Resolving]
  - Blood pressure increased [Recovering/Resolving]
  - Fall [Recovering/Resolving]
  - Heart rate increased [Unknown]

NARRATIVE: CASE EVENT DATE: 20191204
